FAERS Safety Report 5573635-0 (Version None)
Quarter: 2007Q4

REPORT INFORMATION
  Report Type: 
  Country: None (occurrence: None)
  Receive Date: 20071226
  Receipt Date: 20071212
  Transmission Date: 20080405
  Serious: Yes (Other)
  Sender: FDA-Public Use
  Company Number: PL-AMGEN-US255984

PATIENT
  Age: 52 Year
  Sex: Female
  Weight: 62 kg

DRUGS (3)
  1. ENBREL [Suspect]
     Indication: RHEUMATOID ARTHRITIS
     Route: 058
     Dates: start: 20071118, end: 20071127
  2. METHOTREXATE [Concomitant]
     Indication: RHEUMATOID ARTHRITIS
     Dosage: UNKNOWN
     Dates: start: 20071118
  3. METHYLPREDNISOLONE SODIUM SUCCINATE [Concomitant]
     Indication: RHEUMATOID ARTHRITIS
     Dosage: UNKNOWN
     Dates: start: 20071118

REACTIONS (6)
  - INJECTION SITE ERYTHEMA [None]
  - INJECTION SITE IRRITATION [None]
  - INJECTION SITE REACTION [None]
  - INJECTION SITE SWELLING [None]
  - IRRITABILITY [None]
  - NONSPECIFIC REACTION [None]
